FAERS Safety Report 13622116 (Version 1)
Quarter: 2017Q2

REPORT INFORMATION
  Report Type: Spontaneous
  Country: US (occurrence: US)
  Receive Date: 20170607
  Receipt Date: 20170607
  Transmission Date: 20170830
  Serious: No
  Sender: FDA-Public Use
  Company Number: None

PATIENT
  Age: 32 Year
  Sex: Male
  Weight: 129.39 kg

DRUGS (4)
  1. DOXCYCLINE MONOHYDRATE [Suspect]
     Active Substance: DOXYCYCLINE
     Indication: COLITIS
     Route: 048
     Dates: start: 20160201, end: 20170403
  2. CENTRUM SILVER [Concomitant]
     Active Substance: MINERALS\VITAMINS
  3. DOXCYCLINE MONOHYDRATE [Suspect]
     Active Substance: DOXYCYCLINE
     Indication: ACNE
     Route: 048
     Dates: start: 20160201, end: 20170403
  4. VITAMINS [Concomitant]
     Active Substance: VITAMINS

REACTIONS (7)
  - Swelling face [None]
  - Eye haemorrhage [None]
  - Drug dispensing error [None]
  - Respiratory tract infection fungal [None]
  - Product contamination chemical [None]
  - Mouth haemorrhage [None]
  - Product tampering [None]

NARRATIVE: CASE EVENT DATE: 20170403
